FAERS Safety Report 17668972 (Version 1)
Quarter: 2020Q2

REPORT INFORMATION
  Report Type: Spontaneous
  Country: US (occurrence: US)
  Receive Date: 20200415
  Receipt Date: 20200415
  Transmission Date: 20200713
  Serious: No
  Sender: FDA-Public Use
  Company Number: US-TEVA-2019-US-1107450

PATIENT
  Sex: Female

DRUGS (6)
  1. ASPIRIN. [Concomitant]
     Active Substance: ASPIRIN
     Route: 065
  2. L-ARGININE [Concomitant]
     Active Substance: ARGININE
     Indication: PULMONARY ARTERIAL HYPERTENSION
     Dosage: INITIAL DOSE NOT STATED
     Route: 065
  3. L-ARGININE [Concomitant]
     Active Substance: ARGININE
     Indication: PULMONARY ARTERIAL HYPERTENSION
     Route: 065
  4. DILTIAZEM. [Concomitant]
     Active Substance: DILTIAZEM
     Indication: PULMONARY ARTERIAL HYPERTENSION
     Route: 042
  5. MINOCYCLINE [Suspect]
     Active Substance: MINOCYCLINE HYDROCHLORIDE
     Indication: PULMONARY ARTERIAL HYPERTENSION
     Route: 065
  6. DILTIAZEM. [Concomitant]
     Active Substance: DILTIAZEM
     Indication: PULMONARY ARTERIAL HYPERTENSION
     Route: 042

REACTIONS (2)
  - Antinuclear antibody increased [Recovered/Resolved]
  - Transaminases increased [Recovered/Resolved]
